FAERS Safety Report 5526764-1 (Version None)
Quarter: 2007Q4

REPORT INFORMATION
  Report Type: 
  Country: None (occurrence: None)
  Receive Date: 20071127
  Receipt Date: 20071115
  Transmission Date: 20080405
  Serious: Yes (Death)
  Sender: FDA-Public Use
  Company Number: JP-ROCHE-489771

PATIENT
  Age: 20 Year
  Sex: Female

DRUGS (15)
  1. TAMIFLU [Suspect]
     Route: 048
     Dates: start: 20070318, end: 20070321
  2. CHLOPHEDRIN S [Concomitant]
     Route: 048
     Dates: start: 20070318
  3. CARBOCISTEINE [Concomitant]
     Dosage: DRUG NAME REPORTED AS ^C-CYSTEN (CARBOCISTEINE)^.
     Route: 048
     Dates: start: 20070318
  4. AMBROXOL HYDROCHLORIDE [Concomitant]
     Dosage: DRUG NAME REPORTED AS ^MITASOLBIDE (AMBROXOL HYDROCHLORIDE)^.
     Route: 048
     Dates: start: 20070318
  5. LOXOPROFEN SODIUM [Concomitant]
     Dosage: DRUG REPORTED AS ^ROSEOL (LOXOPROFEN SODIUM)^. FORM REPORTED AS ^FINE GRANULE^.
     Route: 048
     Dates: start: 20070318
  6. THEO-SLOW [Concomitant]
     Route: 048
     Dates: start: 20070318
  7. HOKUNALIN [Concomitant]
     Dosage: DOSE FORM REPORTED AS ^TAPE^.
     Route: 061
     Dates: start: 20070318
  8. TAVEGYL [Concomitant]
     Route: 048
     Dates: start: 20070318
  9. IRSOGLADINE MALEATE [Concomitant]
     Dosage: DRUG REPORTED AS ^CEREGASRON (IRSOGLADINE MALEATE)^. DOSE FORM REPORTED AS FINE GRANULES.
     Route: 048
     Dates: start: 20070318
  10. FAMOSTAGINE [Concomitant]
     Route: 048
     Dates: start: 20070318
  11. DIGESTIVE ENZYME NOS [Concomitant]
     Dosage: DRUG REPORTED AS ^YOULASE (DIGESTIVE ENZYME PREPARATIONS)^.
     Route: 048
     Dates: start: 20070318
  12. SHIPKISANON [Concomitant]
     Route: 048
     Dates: start: 20070318
  13. ACHROMYCIN [Concomitant]
     Dosage: DOSE FORM REPORTED AS ^LOZENGE^.
     Route: 048
     Dates: start: 20070318
  14. SULPYRINE [Concomitant]
     Dates: start: 20070320
  15. KETOPROFEN [Concomitant]
     Dosage: DOSE FORM REPORTED AS ^TAPE^.
     Route: 061
     Dates: start: 20070321

REACTIONS (7)
  - CARDIAC FAILURE ACUTE [None]
  - CARDIO-RESPIRATORY ARREST [None]
  - DEHYDRATION [None]
  - METABOLIC ACIDOSIS [None]
  - NAUSEA [None]
  - PERICARDIAL EFFUSION [None]
  - VOMITING [None]
